FAERS Safety Report 8469377-4 (Version None)
Quarter: 2012Q2

REPORT INFORMATION
  Report Type: 
  Country: None (occurrence: None)
  Receive Date: 20120626
  Receipt Date: 20120615
  Transmission Date: 20120825
  Serious: Yes (Death, Hospitalization, Other)
  Sender: FDA-Public Use
  Company Number: JP-CELGENEUS-087-50794-11043766

PATIENT
  Sex: Female
  Weight: 47 kg

DRUGS (19)
  1. VIDAZA [Suspect]
     Dosage: 75 MILLIGRAM/SQ. METER
     Route: 041
     Dates: start: 20110326, end: 20110329
  2. VIDAZA [Suspect]
     Dosage: 25 MILLIGRAM/SQ. METER
     Route: 041
     Dates: start: 20110915, end: 20110921
  3. ENTERONON-R [Concomitant]
     Route: 048
     Dates: start: 20110311
  4. MAXIPIME [Concomitant]
     Route: 048
     Dates: start: 20111130, end: 20111205
  5. VIDAZA [Suspect]
     Dosage: 25 MILLIGRAM/SQ. METER
     Route: 041
     Dates: start: 20111013, end: 20111019
  6. ITRACONAZOLE [Concomitant]
     Route: 048
     Dates: start: 20110311
  7. FEMARA [Concomitant]
     Route: 048
     Dates: start: 20110405, end: 20110509
  8. DORIPENEM MONOHYDRATE [Concomitant]
     Route: 048
     Dates: start: 20111226, end: 20111229
  9. VIDAZA [Suspect]
     Dosage: 37.5 MILLIGRAM/SQ. METER
     Route: 041
     Dates: start: 20110615, end: 20110621
  10. IDAMYCIN [Concomitant]
     Route: 048
     Dates: start: 20111214, end: 20111218
  11. VIDAZA [Suspect]
     Dosage: 25 MILLIGRAM/SQ. METER
     Route: 041
     Dates: start: 20111124, end: 20111129
  12. CYTARABINE [Concomitant]
     Dosage: 100 MILLIGRAM
     Route: 048
     Dates: start: 20111214, end: 20111218
  13. POLYMYXIN B SULFATE [Concomitant]
     Route: 048
     Dates: start: 20110311
  14. AMIKAMYCIN [Concomitant]
     Route: 048
     Dates: start: 20111209, end: 20111212
  15. GENTAMICIN SULFATE [Concomitant]
     Route: 048
     Dates: start: 20111227, end: 20111228
  16. SILECE [Concomitant]
     Route: 048
  17. IMIPENEM AND CILASTATIN SODIUM [Concomitant]
     Route: 048
     Dates: start: 20111206, end: 20111215
  18. MEROPENEM [Concomitant]
     Route: 048
     Dates: start: 20111216, end: 20111226
  19. UNKNOWN DRUG [Concomitant]
     Route: 048
     Dates: start: 20111213, end: 20111226

REACTIONS (5)
  - PLATELET COUNT DECREASED [None]
  - INFECTION [None]
  - NEUTROPHIL COUNT DECREASED [None]
  - WHITE BLOOD CELL COUNT DECREASED [None]
  - HAEMATURIA [None]
